FAERS Safety Report 7744861-7 (Version None)
Quarter: 2011Q3

REPORT INFORMATION
  Report Type: 
  Country: None (occurrence: None)
  Receive Date: 20110912
  Receipt Date: 20110902
  Transmission Date: 20111222
  Serious: Yes (Hospitalization, Disabling, Other)
  Sender: FDA-Public Use
  Company Number: US-MERCK-0609USA07927

PATIENT
  Age: 66 Year
  Sex: Female
  Weight: 73 kg

DRUGS (30)
  1. VITAMIN D (UNSPECIFIED) [Concomitant]
     Route: 065
     Dates: start: 20040101
  2. VITAMIN E [Concomitant]
     Route: 065
     Dates: start: 19920101
  3. FOSAMAX [Suspect]
     Indication: OSTEOPOROSIS
     Route: 048
     Dates: start: 20020101
  4. MAG-OX 400 TABLETS [Concomitant]
     Indication: MUSCLE SPASMS
     Route: 065
     Dates: start: 20040101
  5. ZAROXOLYN [Concomitant]
     Indication: FLUID RETENTION
     Route: 065
     Dates: start: 19960101
  6. GUAIFED [Concomitant]
     Indication: ASTHMA
     Route: 065
     Dates: start: 19900101
  7. TIAZAC [Concomitant]
     Indication: HYPERTENSION
     Route: 065
     Dates: start: 19960101
  8. LANOXICAPS [Concomitant]
     Indication: CARDIAC FAILURE CONGESTIVE
     Route: 065
     Dates: start: 19960101
  9. COLCHICINE [Concomitant]
     Indication: GOUT
     Route: 065
     Dates: start: 19980101
  10. CENTRUM SILVER [Concomitant]
     Route: 065
     Dates: start: 20000101
  11. CLONIDINE [Concomitant]
     Indication: HYPERTENSION
     Route: 065
     Dates: start: 19960101
  12. LASIX [Concomitant]
     Indication: FLUID RETENTION
     Route: 065
     Dates: start: 19960101
  13. ALLOPURINOL [Concomitant]
     Indication: GOUT
     Route: 065
     Dates: start: 19980101
  14. VITAMIN B COMPLEX [Concomitant]
     Route: 065
     Dates: start: 20000101
  15. GLUCOSAMINE [Concomitant]
     Indication: OSTEOARTHRITIS
     Route: 065
     Dates: start: 20020101
  16. ZOMETA [Suspect]
     Route: 065
     Dates: start: 20050101, end: 20060101
  17. OMEGA-3 MARINE TRIGLYCERIDES [Concomitant]
     Route: 065
     Dates: start: 20000101
  18. ASCORBIC ACID [Concomitant]
     Route: 065
     Dates: start: 20000101
  19. CYANOCOBALAMIN [Concomitant]
     Indication: RED BLOOD CELL COUNT DECREASED
     Route: 065
     Dates: start: 20040101
  20. CALCIUM CARBONATE [Concomitant]
     Route: 065
     Dates: start: 20040101
  21. PREDNISONE [Suspect]
     Route: 065
  22. POTASSIUM CHLORIDE [Concomitant]
     Indication: BLOOD POTASSIUM DECREASED
     Route: 065
     Dates: start: 19960101
  23. THEOPHYLLINE [Concomitant]
     Indication: LUNG DISORDER
     Route: 065
     Dates: start: 19960101
  24. LIPITOR [Concomitant]
     Indication: BLOOD CHOLESTEROL INCREASED
     Route: 065
     Dates: start: 19940101
  25. ASPIRIN [Concomitant]
     Indication: ANTICOAGULANT THERAPY
     Route: 065
     Dates: start: 19900101
  26. GARLIC [Concomitant]
     Route: 065
     Dates: start: 20000101
  27. CAPTOPRIL [Concomitant]
     Indication: HYPERTENSION
     Route: 065
     Dates: start: 19960101
  28. PREVACID [Concomitant]
     Indication: GASTROOESOPHAGEAL REFLUX DISEASE
     Route: 065
     Dates: start: 20040101
  29. ALFALFA [Concomitant]
     Indication: ASTHMA
     Route: 065
     Dates: start: 19960101
  30. FOSAMAX [Suspect]
     Route: 048

REACTIONS (71)
  - OSTEONECROSIS OF JAW [None]
  - ANAEMIA [None]
  - AORTIC VALVE INCOMPETENCE [None]
  - INTESTINAL OBSTRUCTION [None]
  - HYPERCALCAEMIA [None]
  - RENAL FAILURE [None]
  - PULMONARY HYPERTENSION [None]
  - MULTIPLE MYELOMA [None]
  - MITRAL VALVE INCOMPETENCE [None]
  - SPINAL DISORDER [None]
  - BUNDLE BRANCH BLOCK LEFT [None]
  - GASTRIC DISORDER [None]
  - FAECALOMA [None]
  - CELLULITIS [None]
  - HYPOKALAEMIA [None]
  - HIATUS HERNIA [None]
  - PAIN IN EXTREMITY [None]
  - MENTAL STATUS CHANGES [None]
  - LEFT VENTRICULAR HYPERTROPHY [None]
  - TYPE 1 DIABETES MELLITUS [None]
  - CARDIAC FAILURE CONGESTIVE [None]
  - TEMPORAL ARTERITIS [None]
  - HEPATIC ENZYME INCREASED [None]
  - CONSTIPATION [None]
  - AORTIC VALVE SCLEROSIS [None]
  - ATRIAL FLUTTER [None]
  - HYPONATRAEMIA [None]
  - METABOLIC ENCEPHALOPATHY [None]
  - LARGE INTESTINAL OBSTRUCTION [None]
  - BLOOD TRIGLYCERIDES INCREASED [None]
  - DIABETES MELLITUS [None]
  - OSTEOARTHRITIS [None]
  - RENAL FAILURE ACUTE [None]
  - POLYMYALGIA RHEUMATICA [None]
  - RHEUMATOID ARTHRITIS [None]
  - FALL [None]
  - NERVOUSNESS [None]
  - CONTUSION [None]
  - GASTROENTERITIS [None]
  - TRICUSPID VALVE INCOMPETENCE [None]
  - LEUKOCYTOSIS [None]
  - OEDEMA PERIPHERAL [None]
  - AZOTAEMIA [None]
  - BRAIN NATRIURETIC PEPTIDE INCREASED [None]
  - PSORIASIS [None]
  - DECREASED APPETITE [None]
  - ANXIETY [None]
  - ATRIOVENTRICULAR BLOCK FIRST DEGREE [None]
  - ASTHENIA [None]
  - CORONARY ARTERY DISEASE [None]
  - COLITIS [None]
  - WOUND INFECTION [None]
  - SEPSIS [None]
  - WALDENSTROM'S MACROGLOBULINAEMIA [None]
  - CARDIOMEGALY [None]
  - CONFUSIONAL STATE [None]
  - RENAL FAILURE CHRONIC [None]
  - HYPERMAGNESAEMIA [None]
  - URINARY TRACT INFECTION [None]
  - DYSLIPIDAEMIA [None]
  - PAIN [None]
  - ATELECTASIS [None]
  - ATRIAL FIBRILLATION [None]
  - DECUBITUS ULCER [None]
  - HYPOMAGNESAEMIA [None]
  - PNEUMONIA [None]
  - PERIORBITAL HAEMATOMA [None]
  - EMPHYSEMA [None]
  - CATARACT [None]
  - PSORIATIC ARTHROPATHY [None]
  - HYPERGAMMAGLOBULINAEMIA BENIGN MONOCLONAL [None]
